FAERS Safety Report 19970403 (Version 3)
Quarter: 2021Q4

REPORT INFORMATION
  Report Type: Spontaneous
  Country: JP (occurrence: JP)
  Receive Date: 20211019
  Receipt Date: 20211029
  Transmission Date: 20220303
  Serious: Yes (Death, Other)
  Sender: FDA-Public Use
  Company Number: JP-BAYER-2021A231800

PATIENT
  Age: 63 Year
  Sex: Male

DRUGS (5)
  1. STIVARGA [Suspect]
     Active Substance: REGORAFENIB
     Indication: Colorectal cancer
     Dosage: 120 MG, DAILY
     Route: 048
     Dates: start: 20190404
  2. STIVARGA [Suspect]
     Active Substance: REGORAFENIB
     Indication: Colon cancer
     Dosage: 80 MG, DAILY
     Route: 048
     Dates: start: 201904
  3. STIVARGA [Suspect]
     Active Substance: REGORAFENIB
     Indication: Colorectal cancer
     Dosage: 120 MG, DAILY, 7COURSE
     Route: 048
  4. STIVARGA [Suspect]
     Active Substance: REGORAFENIB
     Indication: Colorectal cancer
     Dosage: 120 MG, DAILY, 1 COURSE
     Route: 048
     Dates: start: 201912
  5. STIVARGA [Suspect]
     Active Substance: REGORAFENIB
     Indication: Colorectal cancer
     Dosage: 80 MG, DAILY (3 WEEKS ON, 1 WEEK OFF),5 COURSE
     Route: 048
     Dates: start: 202003, end: 202007

REACTIONS (8)
  - Metastases to bone [Unknown]
  - Facial paralysis [Unknown]
  - Metastases to pancreas [Unknown]
  - Malignant pleural effusion [Unknown]
  - Dizziness [Unknown]
  - Vomiting [Unknown]
  - Dizziness [None]
  - Off label use [None]

NARRATIVE: CASE EVENT DATE: 20191101
